FAERS Safety Report 6978140-2 (Version None)
Quarter: 2010Q3

REPORT INFORMATION
  Report Type: 
  Country: None (occurrence: None)
  Receive Date: 20100913
  Receipt Date: 20100831
  Transmission Date: 20110219
  Serious: Yes (Hospitalization)
  Sender: FDA-Public Use
  Company Number: US-BAYER-200934709NA

PATIENT
  Age: 29 Year
  Sex: Female
  Weight: 109 kg

DRUGS (8)
  1. OCELLA [Suspect]
     Indication: CONTRACEPTION
     Dosage: PER PHARMACY RECORDS: OCELLA 3/0.03 MG TAB PRESCRIPTION WAS FILLED APR 2009-JUL 2009
     Route: 048
     Dates: start: 20090401, end: 20090701
  2. ZITHROMAX [Concomitant]
     Route: 065
  3. MACROBID [Concomitant]
     Route: 065
  4. TYLENOL [Concomitant]
  5. ASPIRIN [Concomitant]
     Route: 065
  6. TOPAMAX [Concomitant]
     Route: 065
  7. METOPORAL [Concomitant]
     Route: 065
  8. ALEVE (CAPLET) [Concomitant]
     Route: 065

REACTIONS (4)
  - CEREBROVASCULAR ACCIDENT [None]
  - CONVULSION [None]
  - HEADACHE [None]
  - PAIN [None]
